FAERS Safety Report 4492611-2 (Version None)
Quarter: 2004Q4

REPORT INFORMATION
  Report Type: 
  Country: None (occurrence: None)
  Receive Date: 20041029
  Receipt Date: 20041020
  Transmission Date: 20050328
  Serious: Yes (Hospitalization)
  Sender: FDA-Public Use
  Company Number: 2004-10-1161

PATIENT
  Age: 37 Year
  Sex: Female

DRUGS (2)
  1. RIBAVIRIN [Suspect]
     Indication: HEPATITIS C
     Dosage: 1000 MG QD ORAL
     Route: 048
     Dates: start: 20040202
  2. INFERAX (I(NTERFERON ALFACON-1) [Suspect]
     Indication: HEPATITIS C
     Dosage: 9 MCG QD SUBCUTANEOUS
     Route: 058
     Dates: start: 20031030

REACTIONS (6)
  - DEAFNESS TRANSITORY [None]
  - DEAFNESS UNILATERAL [None]
  - MIGRAINE WITH AURA [None]
  - SPEECH DISORDER [None]
  - TRANSIENT ISCHAEMIC ATTACK [None]
  - VISUAL DISTURBANCE [None]
